FAERS Safety Report 9115716 (Version 1)
Quarter: 2013Q1

REPORT INFORMATION
  Report Type: Spontaneous
  Country: US (occurrence: None)
  Receive Date: 20130221
  Receipt Date: 20130221
  Transmission Date: 20140127
  Serious: No
  Sender: FDA-Public Use
  Company Number: None

PATIENT
  Age: 62 Year
  Sex: Female
  Weight: 104.33 kg

DRUGS (1)
  1. JANUVIA [Suspect]
     Indication: BLOOD GLUCOSE INCREASED
     Dosage: 1 PILL AT BREAKFAST BY MOUTH
     Route: 048
     Dates: start: 20130205, end: 20130206

REACTIONS (3)
  - Fibromyalgia [None]
  - Gait disturbance [None]
  - Arthralgia [None]
